FAERS Safety Report 4462897-9 (Version None)
Quarter: 2004Q3

REPORT INFORMATION
  Report Type: 
  Country: None (occurrence: None)
  Receive Date: 20040927
  Receipt Date: 20040916
  Transmission Date: 20050211
  Serious: Yes (Hospitalization)
  Sender: FDA-Public Use
  Company Number: 200410479BFR

PATIENT
  Age: 27 Year
  Sex: Female

DRUGS (13)
  1. CIPROFLOXACIN [Suspect]
     Indication: ESCHAR
     Dosage: TID, INTRAVENOUS
     Route: 042
     Dates: start: 20040804, end: 20040824
  2. CIPROFLOXACIN [Suspect]
     Indication: PSEUDOMONAS INFECTION
     Dosage: TID, INTRAVENOUS
     Route: 042
     Dates: start: 20040804, end: 20040824
  3. KETOPROFEN [Suspect]
     Dosage: BID, ORAL
     Route: 048
     Dates: start: 20040804, end: 20040824
  4. OMEPRAZOLE [Suspect]
     Dosage: BID, ORAL
     Route: 048
     Dates: start: 20040804, end: 20040824
  5. ACETAMINOPHEN [Suspect]
     Dosage: 3 G, TOTAL DAILY, INTRAVENOUS
     Route: 042
  6. AMOXICILLIN TRIHYDRATE [Suspect]
     Dosage: 4.5 G, TOTAL DAILY, INTRAVENOUS
     Route: 042
     Dates: start: 20040804, end: 20040818
  7. TAZOCILLINE [Suspect]
     Dosage: 12 G, TOTAL DAILY, INTRAVENOUS
     Route: 042
     Dates: start: 20040806, end: 20040824
  8. MYOLASTAN [Concomitant]
  9. FUMAFER [Concomitant]
  10. VOGALENE [Concomitant]
  11. SOLUPRED [Concomitant]
  12. ATARAX [Concomitant]
  13. POLARAMINE [Concomitant]

REACTIONS (4)
  - HEPATITIS CHOLESTATIC [None]
  - INFLUENZA LIKE ILLNESS [None]
  - NEUTROPENIA [None]
  - RASH [None]
